FAERS Safety Report 20016754 (Version 1)
Quarter: 2021Q4

REPORT INFORMATION
  Report Type: Spontaneous
  Country: CA (occurrence: None)
  Receive Date: 20211105
  Receipt Date: 20211105
  Transmission Date: 20220303
  Serious: Yes (Disabling, Other)
  Sender: FDA-Public Use
  Company Number: None

PATIENT
  Age: 32 Month
  Sex: Female
  Weight: 13.5 kg

DRUGS (3)
  1. POLYETHYLENE GLYCOL 3350 [Suspect]
     Active Substance: POLYETHYLENE GLYCOL 3350
     Indication: Constipation
     Route: 048
     Dates: start: 20211027, end: 20211031
  2. MIRALAX [Suspect]
     Active Substance: POLYETHYLENE GLYCOL 3350
  3. POLYETHYLENE GLYCOL 3350 [Suspect]
     Active Substance: POLYETHYLENE GLYCOL 3350

REACTIONS (4)
  - Anger [None]
  - Anger [None]
  - Abnormal behaviour [None]
  - Affect lability [None]

NARRATIVE: CASE EVENT DATE: 20211030
